FAERS Safety Report 9484762 (Version 1)
Quarter: 2013Q3

REPORT INFORMATION
  Report Type: Spontaneous
  Country: US (occurrence: US)
  Receive Date: 20130828
  Receipt Date: 20130828
  Transmission Date: 20140515
  Serious: Yes (Other)
  Sender: FDA-Public Use
  Company Number: US-GLAXOSMITHKLINE-A1038959A

PATIENT
  Sex: Male

DRUGS (7)
  1. ADVAIR [Suspect]
     Indication: ASTHMA
     Dosage: 1PUFF PER DAY
     Route: 055
  2. METFORMIN [Concomitant]
  3. GLIPIZIDE [Concomitant]
  4. PRAVASTATIN [Concomitant]
  5. VITAMIN D3 [Concomitant]
  6. ASPIRIN [Concomitant]
  7. IBUPROFEN [Concomitant]

REACTIONS (3)
  - Diabetes mellitus [Not Recovered/Not Resolved]
  - Blood cholesterol increased [Not Recovered/Not Resolved]
  - Underdose [Unknown]
